FAERS Safety Report 23755347 (Version 3)
Quarter: 2024Q2

REPORT INFORMATION
  Report Type: Report from Study
  Country: GB (occurrence: GB)
  Receive Date: 20240418
  Receipt Date: 20240614
  Transmission Date: 20240715
  Serious: Yes (Death, Hospitalization, Other)
  Sender: FDA-Public Use
  Company Number: GB-002147023-NVSC2024GB081808

PATIENT
  Sex: Male

DRUGS (1)
  1. COSENTYX [Suspect]
     Active Substance: SECUKINUMAB
     Indication: Product used for unknown indication
     Dosage: 150 MG, QMO
     Route: 065

REACTIONS (4)
  - Myocardial infarction [Fatal]
  - Lower respiratory tract infection [Unknown]
  - Eye infection [Unknown]
  - Drug dependence [Unknown]

NARRATIVE: CASE EVENT DATE: 20240413
